FAERS Safety Report 5555986-9 (Version None)
Quarter: 2007Q4

REPORT INFORMATION
  Report Type: 
  Country: None (occurrence: None)
  Receive Date: 20071213
  Receipt Date: 20071204
  Transmission Date: 20080405
  Serious: Yes (Other)
  Sender: FDA-Public Use
  Company Number: US-PFIZER INC-2007102431

PATIENT
  Sex: Female
  Weight: 54.545 kg

DRUGS (9)
  1. XALATAN [Suspect]
     Indication: GLAUCOMA
  2. OXYBUTYNIN CHLORIDE [Concomitant]
  3. ZOCOR [Concomitant]
  4. VITAMINS [Concomitant]
  5. POTASSIUM CHLORIDE [Concomitant]
  6. FISH OIL [Concomitant]
  7. ACETYLSALICYLIC ACID SRT [Concomitant]
  8. VITAMIN D [Concomitant]
  9. HYDROCHLOROTHIAZIDE [Concomitant]

REACTIONS (4)
  - CATARACT OPERATION [None]
  - EYE DISORDER [None]
  - LACRIMATION INCREASED [None]
  - VISUAL ACUITY REDUCED [None]
